FAERS Safety Report 9665564 (Version 2)
Quarter: 2013Q4

REPORT INFORMATION
  Report Type: Spontaneous
  Country: US (occurrence: US)
  Receive Date: 20131104
  Receipt Date: 20131118
  Transmission Date: 20140711
  Serious: No
  Sender: FDA-Public Use
  Company Number: US-PFIZER INC-2013310921

PATIENT
  Age: 61 Year
  Sex: Female

DRUGS (4)
  1. PREMARIN [Suspect]
     Dosage: (0.625MG/GM) 1 G, THREE TIMES WEEKLY
     Route: 067
  2. SYNTHROID [Concomitant]
     Dosage: 75 UG, 1X/DAY
  3. FENOFIBRATE [Concomitant]
     Dosage: 160 MG, 1X/DAY
  4. PANTOPRAZOLE [Concomitant]
     Dosage: 40 MG, 1X/DAY

REACTIONS (2)
  - Vulvovaginal rash [Unknown]
  - Vulvovaginal pruritus [Recovered/Resolved]
